FAERS Safety Report 18669805 (Version 2)
Quarter: 2021Q1

REPORT INFORMATION
  Report Type: Report from Study
  Country: US (occurrence: US)
  Receive Date: 20201228
  Receipt Date: 20210111
  Transmission Date: 20210419
  Serious: Yes (Other)
  Sender: FDA-Public Use
  Company Number: US-JNJFOC-20201233064

PATIENT
  Age: 60 Year
  Sex: Female

DRUGS (2)
  1. STELARA [Suspect]
     Active Substance: USTEKINUMAB
     Indication: PSORIASIS
     Route: 058
     Dates: start: 202002
  2. STELARA [Suspect]
     Active Substance: USTEKINUMAB

REACTIONS (11)
  - COVID-19 [Unknown]
  - Psoriasis [Unknown]
  - Product dispensing error [Unknown]
  - Malaise [Unknown]
  - Ear disorder [Not Recovered/Not Resolved]
  - Migraine [Unknown]
  - Chest discomfort [Unknown]
  - Cough [Unknown]
  - Meniscus injury [Unknown]
  - Pancreatitis [Unknown]
  - Nasal congestion [Unknown]

NARRATIVE: CASE EVENT DATE: 2020
